FAERS Safety Report 7700168-5 (Version None)
Quarter: 2011Q3

REPORT INFORMATION
  Report Type: 
  Country: None (occurrence: None)
  Receive Date: 20110822
  Receipt Date: 20110817
  Transmission Date: 20111222
  Serious: No
  Sender: FDA-Public Use
  Company Number: US-PFIZER INC-2011189890

PATIENT

DRUGS (3)
  1. CAMPTOSAR [Suspect]
     Indication: COLON CANCER
     Dosage: UNK
     Route: 042
  2. OXALIPLATIN [Concomitant]
     Dosage: UNK
  3. FLUOROURACIL [Concomitant]
     Dosage: UNK

REACTIONS (2)
  - NEUROLOGICAL SYMPTOM [None]
  - SPEECH DISORDER [None]
